FAERS Safety Report 24930289 (Version 4)
Quarter: 2025Q3

REPORT INFORMATION
  Report Type: Spontaneous
  Country: US (occurrence: US)
  Receive Date: 20250205
  Receipt Date: 20250903
  Transmission Date: 20251020
  Serious: No
  Sender: PFIZER
  Company Number: US-PFIZER INC-202500022566

PATIENT
  Age: 50 Year
  Sex: Female

DRUGS (1)
  1. XELJANZ XR [Suspect]
     Active Substance: TOFACITINIB CITRATE
     Dates: start: 202412

REACTIONS (5)
  - Dyskinesia [Unknown]
  - Pain in extremity [Unknown]
  - Arthralgia [Recovered/Resolved with Sequelae]
  - Infection [Unknown]
  - Swelling [Not Recovered/Not Resolved]
